FAERS Safety Report 4730199-9 (Version None)
Quarter: 2005Q3

REPORT INFORMATION
  Report Type: 
  Country: None (occurrence: None)
  Receive Date: 20050729
  Receipt Date: 20050729
  Transmission Date: 20060218
  Serious: Yes (Other)
  Sender: FDA-Public Use
  Company Number: None

PATIENT
  Age: 76 Year
  Sex: Male
  Weight: 93.4 kg

DRUGS (9)
  1. FOSINOPRIL SODIUM [Suspect]
  2. SIMVASTATIN [Concomitant]
  3. GLIPIZIDE [Concomitant]
  4. LANOXIN [Concomitant]
  5. SPIRONOLACTONE [Concomitant]
  6. ASPIRIN [Concomitant]
  7. FUROSEMIDE [Concomitant]
  8. FOSINOPRIL SODIUM [Concomitant]
  9. CARVEDILOL [Concomitant]

REACTIONS (1)
  - UNEVALUABLE EVENT [None]
